FAERS Safety Report 21125972 (Version 1)
Quarter: 2022Q3

REPORT INFORMATION
  Report Type: Spontaneous
  Country: US (occurrence: US)
  Receive Date: 20220725
  Receipt Date: 20220725
  Transmission Date: 20221026
  Serious: No
  Sender: FDA-Public Use
  Company Number: US-ABBVIE-21K-163-4019182-00

PATIENT
  Age: 22 Year
  Sex: Female

DRUGS (2)
  1. ELAGOLIX [Suspect]
     Active Substance: ELAGOLIX
     Indication: Endometriosis
     Route: 048
  2. UNSPECIFIED INGREDIENT [Suspect]
     Active Substance: UNSPECIFIED INGREDIENT
     Indication: Product used for unknown indication
     Route: 065

REACTIONS (2)
  - Maternal exposure during pregnancy [Unknown]
  - Treatment failure [Unknown]
